FAERS Safety Report 19230692 (Version 1)
Quarter: 2021Q2

REPORT INFORMATION
  Report Type: Spontaneous
  Country: US (occurrence: US)
  Receive Date: 20210507
  Receipt Date: 20210507
  Transmission Date: 20210717
  Serious: No
  Sender: FDA-Public Use
  Company Number: None

PATIENT
  Age: 59 Year
  Sex: Male
  Weight: 87 kg

DRUGS (1)
  1. WARFARIN (WARFARIN NA 4MG TAB) [Suspect]
     Active Substance: WARFARIN SODIUM
     Dates: start: 20191115, end: 20201220

REACTIONS (4)
  - Haematemesis [None]
  - Platelet count decreased [None]
  - Abdominal pain [None]
  - Transaminases increased [None]

NARRATIVE: CASE EVENT DATE: 20201221
